FAERS Safety Report 6671782-3 (Version None)
Quarter: 2010Q2

REPORT INFORMATION
  Report Type: 
  Country: None (occurrence: None)
  Receive Date: 20100406
  Receipt Date: 20100406
  Transmission Date: 20101027
  Serious: Yes (Other)
  Sender: FDA-Public Use
  Company Number: None

PATIENT
  Age: 75 Year
  Sex: Female
  Weight: 58.514 kg

DRUGS (2)
  1. ALENDRONATE SODIUM [Suspect]
     Indication: OSTEOPOROSIS
     Dosage: ONE WEEKLY PO
     Route: 048
     Dates: start: 20080101, end: 20100101
  2. FOSAMAX BRANDC= [Concomitant]

REACTIONS (2)
  - BONE DENSITY DECREASED [None]
  - PRODUCT SUBSTITUTION ISSUE [None]
